FAERS Safety Report 15120363 (Version 1)
Quarter: 2018Q3

REPORT INFORMATION
  Report Type: Report from Study
  Country: BR (occurrence: BR)
  Receive Date: 20180709
  Receipt Date: 20180709
  Transmission Date: 20181010
  Serious: Yes (Other)
  Sender: FDA-Public Use
  Company Number: BR-ROCHE-2150906

PATIENT
  Sex: Female
  Weight: 78 kg

DRUGS (8)
  1. XOLAIR [Suspect]
     Active Substance: OMALIZUMAB
     Indication: URTICARIA
     Dosage: 2 DF, QMO (300 MG) (17 AUG)
     Route: 058
  2. XOLAIR [Suspect]
     Active Substance: OMALIZUMAB
     Dosage: 300 MG, EVERY 4 WEEKS
     Route: 058
     Dates: start: 20170915
  3. XOLAIR [Suspect]
     Active Substance: OMALIZUMAB
     Indication: ASTHMA
     Dosage: 2 DF, QMO (300 MG) (15 SEP)
     Route: 058
  4. ATORVASTATIN [Concomitant]
     Active Substance: ATORVASTATIN
     Indication: BLOOD CHOLESTEROL INCREASED
     Dosage: (10 YEARS AGO)
     Route: 048
  5. XOLAIR [Suspect]
     Active Substance: OMALIZUMAB
     Dosage: 2 DF, QMO (300 MG) (16 OCT)
     Route: 058
     Dates: end: 20171016
  6. XOLAIR [Suspect]
     Active Substance: OMALIZUMAB
     Indication: CHRONIC SPONTANEOUS URTICARIA
     Dosage: 300 MG, EVERY 4 WEEKS
     Route: 058
     Dates: start: 20170817
  7. XOLAIR [Suspect]
     Active Substance: OMALIZUMAB
     Dosage: 300 MG, QW
     Route: 058
  8. FORASEQ (BRAZIL) [Concomitant]
     Active Substance: BUDESONIDE\FORMOTEROL FUMARATE
     Indication: HYPERSENSITIVITY
     Dosage: UNK
     Route: 065

REACTIONS (9)
  - Erythema [Unknown]
  - Pruritus generalised [Not Recovered/Not Resolved]
  - Nervousness [Unknown]
  - Malaise [Not Recovered/Not Resolved]
  - Urticaria [Not Recovered/Not Resolved]
  - Paraesthesia [Not Recovered/Not Resolved]
  - Skin burning sensation [Unknown]
  - Drug ineffective [Unknown]
  - Sensitivity to weather change [Unknown]
